FAERS Safety Report 23438897 (Version 1)
Quarter: 2024Q1

REPORT INFORMATION
  Report Type: Other
  Country: US (occurrence: None)
  Receive Date: 20240124
  Receipt Date: 20240124
  Transmission Date: 20240410
  Serious: No
  Sender: FDA-Public Use
  Company Number: US-ROCHE-3495449

PATIENT
  Age: 34 Year
  Sex: Male

DRUGS (1)
  1. OCREVUS [Suspect]
     Active Substance: OCRELIZUMAB
     Indication: Multiple sclerosis
     Dosage: MOST RECENT DOSE RECEIVED ON 19/DEC/2023
     Route: 065
     Dates: start: 20231205

REACTIONS (2)
  - Nasopharyngitis [Unknown]
  - Influenza [Unknown]
